FAERS Safety Report 8332988-0 (Version None)
Quarter: 2012Q2

REPORT INFORMATION
  Report Type: 
  Country: None (occurrence: None)
  Receive Date: 20120503
  Receipt Date: 20120425
  Transmission Date: 20120825
  Serious: Yes (Other)
  Sender: FDA-Public Use
  Company Number: PHEH2012US008829

PATIENT
  Sex: Male

DRUGS (2)
  1. DIOVAN [Suspect]
  2. INSULIN [Concomitant]

REACTIONS (2)
  - DIZZINESS [None]
  - CARDIAC DISORDER [None]
